FAERS Safety Report 5531495-8 (Version None)
Quarter: 2007Q4

REPORT INFORMATION
  Report Type: 
  Country: None (occurrence: None)
  Receive Date: 20071128
  Receipt Date: 20071128
  Transmission Date: 20080405
  Serious: No
  Sender: FDA-Public Use
  Company Number: None

PATIENT
  Age: 65 Year
  Sex: Female
  Weight: 68.0396 kg

DRUGS (1)
  1. KEFLEX [Suspect]
     Indication: CYST
     Dosage: 500MG 3 PER DAY
     Dates: start: 20071006, end: 20071010

REACTIONS (1)
  - DYSPNOEA [None]
